FAERS Safety Report 14153060 (Version 1)
Quarter: 2017Q4

REPORT INFORMATION
  Report Type: Spontaneous
  Country: US (occurrence: US)
  Receive Date: 20171102
  Receipt Date: 20171102
  Transmission Date: 20180321
  Serious: No
  Sender: FDA-Public Use
  Company Number: US-UPSHER-SMITH LABORATORIES, INC.-2017USL00186

PATIENT
  Age: 74 Year
  Sex: Female
  Weight: 72.56 kg

DRUGS (11)
  1. JANTOVEN [Suspect]
     Active Substance: WARFARIN SODIUM
     Dosage: 2 MG, 1X/WEEK
     Route: 048
     Dates: start: 2012, end: 201706
  2. JANTOVEN [Suspect]
     Active Substance: WARFARIN SODIUM
     Dosage: UNK
  3. AMLODIPINE [Concomitant]
     Active Substance: AMLODIPINE BESYLATE
  4. VITAMIN B12 [Concomitant]
     Active Substance: CYANOCOBALAMIN
     Route: 060
  5. JANTOVEN [Suspect]
     Active Substance: WARFARIN SODIUM
     Indication: ATRIAL FIBRILLATION
     Dosage: 4 MG, 6X/WEEK
     Route: 048
     Dates: start: 2012, end: 201706
  6. JANTOVEN [Suspect]
     Active Substance: WARFARIN SODIUM
     Dosage: 4 MG, 3X/WEEK
     Route: 048
     Dates: start: 201706, end: 20170827
  7. JANTOVEN [Suspect]
     Active Substance: WARFARIN SODIUM
     Dosage: 2 MG, 4X/WEEK
     Route: 048
     Dates: start: 201706, end: 20170827
  8. LOSARTAN. [Concomitant]
     Active Substance: LOSARTAN
  9. DIGOXIN. [Concomitant]
     Active Substance: DIGOXIN
  10. ASPIRIN. [Suspect]
     Active Substance: ASPIRIN
  11. ADULT GUMMIES WITH FIBER AND VITAMIN D [Concomitant]

REACTIONS (2)
  - Gingival bleeding [Recovered/Resolved]
  - International normalised ratio increased [Recovering/Resolving]

NARRATIVE: CASE EVENT DATE: 201706
